FAERS Safety Report 10854726 (Version 1)
Quarter: 2015Q1

REPORT INFORMATION
  Report Type: Spontaneous
  Country: GB (occurrence: None)
  Receive Date: 20150218
  Receipt Date: 20150218
  Transmission Date: 20150721
  Serious: No
  Sender: FDA-Public Use
  Company Number: None

PATIENT
  Age: 18 Year
  Sex: Male
  Weight: 81 kg

DRUGS (1)
  1. ROACCUTANE [Suspect]
     Active Substance: ISOTRETINOIN
     Indication: ACNE
     Dosage: 3
     Route: 048
     Dates: start: 20100210, end: 20120628

REACTIONS (6)
  - Malaise [None]
  - Mental impairment [None]
  - Nausea [None]
  - Suicidal ideation [None]
  - Fatigue [None]
  - Depression [None]

NARRATIVE: CASE EVENT DATE: 20120615
